FAERS Safety Report 6042149-6 (Version None)
Quarter: 2009Q1

REPORT INFORMATION
  Report Type: 
  Country: None (occurrence: None)
  Receive Date: 20090116
  Receipt Date: 20080616
  Transmission Date: 20090719
  Serious: No
  Sender: FDA-Public Use
  Company Number: US-BAYER-200812821BCC

PATIENT
  Age: 68 Year
  Sex: Male
  Weight: 79 kg

DRUGS (1)
  1. ALEVE (CAPLET) [Suspect]
     Dosage: AS USED: 880 MG  UNIT DOSE: 220 MG
     Route: 048
     Dates: start: 20080616

REACTIONS (1)
  - NO ADVERSE EVENT [None]
